FAERS Safety Report 12802666 (Version 1)
Quarter: 2016Q4

REPORT INFORMATION
  Report Type: Spontaneous
  Country: US (occurrence: US)
  Receive Date: 20161001
  Receipt Date: 20161001
  Transmission Date: 20170207
  Serious: No
  Sender: FDA-Public Use
  Company Number: None

PATIENT
  Age: 1 Year
  Sex: Female
  Weight: 16.2 kg

DRUGS (1)
  1. COLD N COUGH 4 KIDS [Suspect]
     Active Substance: HOMEOPATHICS
     Indication: NASOPHARYNGITIS
     Dates: start: 20160924

REACTIONS (7)
  - Hallucination [None]
  - Irritability [None]
  - Flushing [None]
  - Restlessness [None]
  - Pyrexia [None]
  - Disorientation [None]
  - Heart rate increased [None]

NARRATIVE: CASE EVENT DATE: 20160924
